FAERS Safety Report 5272712-1 (Version None)
Quarter: 2007Q1

REPORT INFORMATION
  Report Type: 
  Country: None (occurrence: None)
  Receive Date: 20070322
  Receipt Date: 20070322
  Transmission Date: 20070707
  Serious: Yes (Other)
  Sender: FDA-Public Use
  Company Number: BR-GLAXOSMITHKLINE-A0643577A

PATIENT
  Sex: Male
  Weight: 58 kg

DRUGS (3)
  1. SUPER COREGA [Suspect]
     Indication: DENTURE WEARER
     Dates: start: 20070212
  2. CAPTOPRIL [Suspect]
     Dosage: 25MG PER DAY
  3. ATENOLOL [Concomitant]

REACTIONS (4)
  - MOUTH INJURY [None]
  - MUCOSAL HAEMORRHAGE [None]
  - MUCOUS MEMBRANE DISORDER [None]
  - VASCULAR RUPTURE [None]
